FAERS Safety Report 21627390 (Version 5)
Quarter: 2023Q1

REPORT INFORMATION
  Report Type: Report from Study
  Country: CA (occurrence: CA)
  Receive Date: 20221122
  Receipt Date: 20230306
  Transmission Date: 20230418
  Serious: Yes (Hospitalization, Other)
  Sender: FDA-Public Use
  Company Number: CA-TAKEDA-2022TUS008406

PATIENT
  Age: 93 Year
  Sex: Female

DRUGS (5)
  1. VEDOLIZUMAB [Suspect]
     Active Substance: VEDOLIZUMAB
     Indication: Crohn^s disease
     Dosage: 300 MILLIGRAM
     Route: 042
     Dates: start: 20180326
  2. VEDOLIZUMAB [Suspect]
     Active Substance: VEDOLIZUMAB
     Dosage: 300 MILLIGRAM, Q4WEEKS
     Route: 042
     Dates: start: 20190708
  3. VEDOLIZUMAB [Suspect]
     Active Substance: VEDOLIZUMAB
     Dosage: 300 MILLIGRAM, Q4WEEKS
     Route: 042
  4. VEDOLIZUMAB [Suspect]
     Active Substance: VEDOLIZUMAB
     Dosage: 300 MILLIGRAM, Q4WEEKS
     Route: 042
  5. VEDOLIZUMAB [Suspect]
     Active Substance: VEDOLIZUMAB
     Dosage: 300 MILLIGRAM, Q4WEEKS
     Route: 042
     Dates: end: 20230125

REACTIONS (27)
  - Aggression [Unknown]
  - Fall [Recovering/Resolving]
  - COVID-19 [Recovering/Resolving]
  - Dehydration [Not Recovered/Not Resolved]
  - General physical health deterioration [Unknown]
  - Cerebrovascular accident [Recovering/Resolving]
  - Dementia Alzheimer^s type [Unknown]
  - Diarrhoea [Not Recovered/Not Resolved]
  - Transient ischaemic attack [Recovering/Resolving]
  - Facial paralysis [Recovering/Resolving]
  - Poor venous access [Not Recovered/Not Resolved]
  - Somnolence [Unknown]
  - Catheter site swelling [Recovering/Resolving]
  - Therapeutic product effect decreased [Unknown]
  - Faeces discoloured [Unknown]
  - Pain [Unknown]
  - Off label use [Unknown]
  - Weight decreased [Unknown]
  - Wound [Recovering/Resolving]
  - Speech disorder [Recovering/Resolving]
  - Gait disturbance [Recovering/Resolving]
  - Decubitus ulcer [Recovering/Resolving]
  - Contusion [Recovering/Resolving]
  - Abdominal pain [Unknown]
  - Feeling cold [Unknown]
  - Back pain [Not Recovered/Not Resolved]
  - Arthralgia [Not Recovered/Not Resolved]

NARRATIVE: CASE EVENT DATE: 20190708
